FAERS Safety Report 18753400 (Version 1)
Quarter: 2021Q1

REPORT INFORMATION
  Report Type: Spontaneous
  Country: US (occurrence: US)
  Receive Date: 20210118
  Receipt Date: 20210118
  Transmission Date: 20210419
  Serious: No
  Sender: FDA-Public Use
  Company Number: US-THERATECHNOLOGIES EUROPE LIMITED-2021-THE-IBA-000012

PATIENT
  Age: 46 Year

DRUGS (1)
  1. TROGARZO [Suspect]
     Active Substance: IBALIZUMAB-UIYK
     Indication: PRODUCT USED FOR UNKNOWN INDICATION
     Dosage: UNK
     Route: 042
     Dates: start: 202002

REACTIONS (5)
  - Paraesthesia [Unknown]
  - Oedema peripheral [Unknown]
  - Pyrexia [Unknown]
  - Joint stiffness [Unknown]
  - Muscular weakness [Unknown]

NARRATIVE: CASE EVENT DATE: 202012
